FAERS Safety Report 5197384-6 (Version None)
Quarter: 2006Q4

REPORT INFORMATION
  Report Type: 
  Country: None (occurrence: None)
  Receive Date: 20061228
  Receipt Date: 20061220
  Transmission Date: 20070319
  Serious: Yes (Other)
  Sender: FDA-Public Use
  Company Number: 234217

PATIENT
  Sex: Female

DRUGS (1)
  1. RITUXAN [Suspect]
     Indication: NON-HODGKIN'S LYMPHOMA
     Dosage: 375 MG/M2, 1/WEEK, INTRAVENOUS; 375 MG/M2, INTRAVENOUS
     Route: 042
     Dates: start: 20060101

REACTIONS (8)
  - BLINDNESS UNILATERAL [None]
  - HEADACHE [None]
  - HYPERSENSITIVITY [None]
  - NEOPLASM [None]
  - NERVE COMPRESSION [None]
  - OPTIC NERVE DISORDER [None]
  - VISUAL DISTURBANCE [None]
  - XANTHOPSIA [None]
